FAERS Safety Report 18927100 (Version 1)
Quarter: 2021Q1

REPORT INFORMATION
  Report Type: Spontaneous
  Country: US (occurrence: US)
  Receive Date: 20210222
  Receipt Date: 20210222
  Transmission Date: 20210420
  Serious: Yes (Disabling)
  Sender: FDA-Public Use
  Company Number: None

PATIENT
  Age: 79 Year
  Sex: Male
  Weight: 72 kg

DRUGS (3)
  1. DAILY VITAMINS [Concomitant]
     Active Substance: VITAMINS
  2. TELMISARTAN 80MG TABS MYLAN [Suspect]
     Active Substance: TELMISARTAN
     Indication: HYPERTENSION
     Dosage: ?          QUANTITY:30 TABLET(S);?
     Route: 048
     Dates: start: 20210214, end: 20210217
  3. ASPIRIN. [Concomitant]
     Active Substance: ASPIRIN

REACTIONS (4)
  - Condition aggravated [None]
  - Product substitution issue [None]
  - Dry mouth [None]
  - Fatigue [None]

NARRATIVE: CASE EVENT DATE: 20210217
